FAERS Safety Report 6543114-2 (Version None)
Quarter: 2010Q1

REPORT INFORMATION
  Report Type: 
  Country: None (occurrence: None)
  Receive Date: 20100120
  Receipt Date: 20100112
  Transmission Date: 20100710
  Serious: Yes (Hospitalization)
  Sender: FDA-Public Use
  Company Number: PHEH2009US18486

PATIENT
  Sex: Male

DRUGS (7)
  1. EXELON [Suspect]
     Indication: DEMENTIA ALZHEIMER'S TYPE
     Dosage: 6 MG, BID
     Route: 048
     Dates: end: 20091207
  2. NAMENDA [Suspect]
     Dosage: UNK
     Dates: end: 20090901
  3. BUSPAR [Concomitant]
     Dosage: 5 MG, UNK
  4. PROZAC [Concomitant]
     Dosage: 10 MG, UNK
  5. PROSCAR [Concomitant]
     Dosage: 5 MG, UNK
  6. MIRALAX [Concomitant]
  7. DRUG THERAPY NOS [Concomitant]
     Indication: ABNORMAL FAECES

REACTIONS (5)
  - ABNORMAL BEHAVIOUR [None]
  - AGGRESSION [None]
  - AGITATION [None]
  - DEMENTIA ALZHEIMER'S TYPE [None]
  - IMPULSIVE BEHAVIOUR [None]
